FAERS Safety Report 12645336 (Version 1)
Quarter: 2016Q3

REPORT INFORMATION
  Report Type: Spontaneous
  Country: US (occurrence: US)
  Receive Date: 20160811
  Receipt Date: 20160811
  Transmission Date: 20161109
  Serious: No
  Sender: FDA-Public Use
  Company Number: US-JAZZ-2016-US-004515

PATIENT
  Age: 34 Year
  Sex: Male

DRUGS (13)
  1. ANASTROZOLE. [Concomitant]
     Active Substance: ANASTROZOLE
  2. XYREM [Suspect]
     Active Substance: SODIUM OXYBATE
     Indication: NARCOLEPSY
     Dosage: 2.25 G, BID
     Route: 048
     Dates: start: 201601, end: 201601
  3. XYREM [Suspect]
     Active Substance: SODIUM OXYBATE
     Dosage: DOSE ADJUSTMENTS
     Route: 048
  4. XYREM [Suspect]
     Active Substance: SODIUM OXYBATE
     Dosage: 4.5 G, BID
     Route: 048
     Dates: start: 201602, end: 201603
  5. JUICE PLUS [Concomitant]
     Active Substance: DIETARY SUPPLEMENT
  6. ATORVASTATIN [Concomitant]
     Active Substance: ATORVASTATIN
  7. NAPROXEN. [Concomitant]
     Active Substance: NAPROXEN
  8. PHENTERMINE. [Concomitant]
     Active Substance: PHENTERMINE
  9. MULTIVITAMINS [Concomitant]
     Active Substance: VITAMINS
  10. ETODOLAC. [Concomitant]
     Active Substance: ETODOLAC
  11. MODAFINIL. [Concomitant]
     Active Substance: MODAFINIL
  12. TESTOSTERONE. [Concomitant]
     Active Substance: TESTOSTERONE
  13. BUPROPION HCL [Concomitant]
     Active Substance: BUPROPION HYDROCHLORIDE

REACTIONS (3)
  - Anxiety [Recovered/Resolved]
  - Palpitations [Recovered/Resolved]
  - Tremor [Recovered/Resolved]

NARRATIVE: CASE EVENT DATE: 201603
